FAERS Safety Report 13301092 (Version 2)
Quarter: 2017Q1

REPORT INFORMATION
  Report Type: Report from Study
  Country: DK (occurrence: DK)
  Receive Date: 20170307
  Receipt Date: 20170329
  Transmission Date: 20170428
  Serious: Yes (Hospitalization)
  Sender: FDA-Public Use
  Company Number: PHHO2017DK004203

PATIENT
  Age: 81 Year
  Sex: Male
  Weight: 62.2 kg

DRUGS (15)
  1. PROBENECID. [Concomitant]
     Active Substance: PROBENECID
     Indication: GOUT
     Dosage: 250 MG, PN
     Route: 065
     Dates: start: 20161222
  2. CLORIOCARD [Concomitant]
     Indication: THROMBOSIS PROPHYLAXIS
     Dosage: 75 MG, QD
     Route: 048
     Dates: start: 20161222
  3. VIBEDEN [Concomitant]
     Indication: VITAMIN SUPPLEMENTATION
     Dosage: 1 MG, EVERY 12 WEEK
     Route: 065
     Dates: start: 20160620
  4. ATORVASTATIN [Concomitant]
     Active Substance: ATORVASTATIN
     Indication: PROPHYLAXIS
     Dosage: 80 MG X 1
     Route: 048
     Dates: start: 20160418
  5. MAGNYL [Concomitant]
     Active Substance: ASPIRIN
     Indication: PROPHYLAXIS
     Dosage: 100 MG X 1
     Route: 048
     Dates: start: 20100617
  6. NITROLINGUAL-SPRAY N [Concomitant]
     Indication: ANGINA PECTORIS
     Dosage: 0.4 MG, PN
     Route: 065
     Dates: start: 20160728
  7. PAMOL [Concomitant]
     Active Substance: ACETAMINOPHEN
     Indication: PROPHYLAXIS
     Dosage: 1 G,PN
     Route: 065
     Dates: start: 20100723
  8. AMN107 [Suspect]
     Active Substance: NILOTINIB
     Indication: CHRONIC MYELOID LEUKAEMIA
     Dosage: 300 MG, BID
     Route: 048
     Dates: start: 20140212
  9. IMDUR [Suspect]
     Active Substance: ISOSORBIDE MONONITRATE
     Indication: PROPHYLAXIS
     Dosage: 60 MG, QD
     Route: 048
     Dates: start: 20140908
  10. LEVEMIR [Concomitant]
     Active Substance: INSULIN DETEMIR
     Indication: DIABETES MELLITUS
     Dosage: 5 UHLL, QD
     Route: 058
     Dates: start: 20160418
  11. UNIKALK FORTE [Concomitant]
     Indication: VITAMIN SUPPLEMENTATION
     Dosage: ^1 X1^
     Route: 048
     Dates: start: 20160723
  12. ALLOPURINOL. [Concomitant]
     Active Substance: ALLOPURINOL
     Indication: GOUT
     Dosage: 300 MG X 1
     Route: 048
     Dates: start: 20160620
  13. VITAMIN D [Concomitant]
     Active Substance: CHOLECALCIFEROL
     Indication: VITAMIN SUPPLEMENTATION
     Dosage: 35 ^MILERG X 1^
     Route: 048
     Dates: start: 20160723
  14. KALEORID [Concomitant]
     Active Substance: POTASSIUM CHLORIDE
     Indication: MINERAL SUPPLEMENTATION
     Dosage: 750 MG X 2
     Route: 048
     Dates: start: 20110706
  15. AMLODIPINE [Concomitant]
     Active Substance: AMLODIPINE BESYLATE
     Indication: HYPERTENSION
     Dosage: 5 MG X 1
     Route: 048
     Dates: start: 20110703

REACTIONS (1)
  - Syncope [Recovered/Resolved]

NARRATIVE: CASE EVENT DATE: 20161231
